FAERS Safety Report 7033147-4 (Version None)
Quarter: 2010Q4

REPORT INFORMATION
  Report Type: 
  Country: None (occurrence: None)
  Receive Date: 20101007
  Receipt Date: 20100927
  Transmission Date: 20110411
  Serious: Yes (Other)
  Sender: FDA-Public Use
  Company Number: CA-JNJFOC-20100908936

PATIENT
  Sex: Female
  Weight: 131 kg

DRUGS (14)
  1. REMICADE [Suspect]
     Indication: PSORIASIS
     Route: 042
  2. METHADONE [Concomitant]
  3. TRAZODONE HCL [Concomitant]
  4. SEROQUEL [Concomitant]
  5. AMITRIPTYLINE [Concomitant]
  6. SYNTHROID [Concomitant]
  7. NOVOSPIROTON [Concomitant]
  8. RAMIPRIL [Concomitant]
  9. PREDNISONE [Concomitant]
  10. LASIX [Concomitant]
  11. OXYBUTYNIN [Concomitant]
  12. CARVEDILOL [Concomitant]
  13. PROZAC [Concomitant]
  14. NEXIUM [Concomitant]

REACTIONS (4)
  - ABDOMINAL PAIN UPPER [None]
  - DYSPNOEA [None]
  - INFUSION RELATED REACTION [None]
  - PANIC REACTION [None]
